FAERS Safety Report 8123722-8 (Version None)
Quarter: 2012Q1

REPORT INFORMATION
  Report Type: 
  Country: None (occurrence: None)
  Receive Date: 20120208
  Receipt Date: 20120131
  Transmission Date: 20120608
  Serious: Yes (Other)
  Sender: FDA-Public Use
  Company Number: US-ASTRAZENECA-2012SE00878

PATIENT
  Age: 72 Year
  Sex: Female

DRUGS (7)
  1. SEROQUEL [Suspect]
     Route: 048
  2. SEROQUEL [Suspect]
     Indication: BIPOLAR DISORDER
     Route: 048
  3. SEROQUEL [Suspect]
     Indication: ANXIETY
     Route: 048
  4. SEROQUEL [Suspect]
     Route: 048
  5. VICODIN [Concomitant]
     Indication: POSTOPERATIVE ANALGESIA
  6. SEROQUEL [Suspect]
     Indication: SLEEP DISORDER
     Route: 048
  7. SEROQUEL [Suspect]
     Route: 048

REACTIONS (5)
  - CARDIAC MURMUR [None]
  - ADVERSE EVENT [None]
  - OFF LABEL USE [None]
  - VISUAL IMPAIRMENT [None]
  - AORTIC VALVE DISEASE [None]
